FAERS Safety Report 14211598 (Version 1)
Quarter: 2017Q4

REPORT INFORMATION
  Report Type: Spontaneous
  Country: US (occurrence: None)
  Receive Date: 20171121
  Receipt Date: 20171121
  Transmission Date: 20180321
  Serious: Yes (Hospitalization)
  Sender: FDA-Public Use
  Company Number: None

PATIENT
  Age: 63 Year
  Sex: Male
  Weight: 89 kg

DRUGS (2)
  1. AZACITIDINE. [Suspect]
     Active Substance: AZACITIDINE
  2. PEMBROLIZUMAB. [Suspect]
     Active Substance: PEMBROLIZUMAB

REACTIONS (9)
  - Oxygen saturation decreased [None]
  - Dialysis [None]
  - Rash [None]
  - Hypotension [None]
  - Respiratory distress [None]
  - Deep vein thrombosis [None]
  - Pyrexia [None]
  - Tachypnoea [None]
  - Acidosis [None]

NARRATIVE: CASE EVENT DATE: 20171119
